FAERS Safety Report 13190221 (Version 1)
Quarter: 2017Q1

REPORT INFORMATION
  Report Type: Spontaneous
  Country: IN (occurrence: IN)
  Receive Date: 20170206
  Receipt Date: 20170206
  Transmission Date: 20170428
  Serious: Yes (Other)
  Sender: FDA-Public Use
  Company Number: IN-MYLANLABS-2017M1006851

PATIENT

DRUGS (2)
  1. CLOZAPINE. [Suspect]
     Active Substance: CLOZAPINE
     Indication: SCHIZOPHRENIA
     Dosage: UNK
  2. CLOZAPINE. [Suspect]
     Active Substance: CLOZAPINE
     Dosage: 600 MG, QD

REACTIONS (1)
  - Psychotic disorder [Recovering/Resolving]
